FAERS Safety Report 8525402-3 (Version None)
Quarter: 2012Q3

REPORT INFORMATION
  Report Type: 
  Country: None (occurrence: None)
  Receive Date: 20120720
  Receipt Date: 20120713
  Transmission Date: 20120928
  Serious: Yes (Hospitalization)
  Sender: FDA-Public Use
  Company Number: US-US-EMD SERONO, INC.-7147726

PATIENT
  Sex: Female
  Weight: 54 kg

DRUGS (3)
  1. REBIF [Suspect]
     Indication: MULTIPLE SCLEROSIS
     Route: 058
     Dates: start: 20110801, end: 20120201
  2. REBIF [Suspect]
     Route: 058
     Dates: start: 20120301
  3. REBIF [Suspect]
     Route: 058

REACTIONS (3)
  - POSTOPERATIVE WOUND COMPLICATION [None]
  - ALOPECIA [None]
  - HERNIA [None]
